FAERS Safety Report 5808652-6 (Version None)
Quarter: 2008Q3

REPORT INFORMATION
  Report Type: 
  Country: None (occurrence: None)
  Receive Date: 20080714
  Receipt Date: 20080709
  Transmission Date: 20090109
  Serious: Yes (Death, Hospitalization)
  Sender: FDA-Public Use
  Company Number: US-BRISTOL-MYERS SQUIBB COMPANY-14256705

PATIENT
  Age: 75 Year
  Sex: Female
  Weight: 82 kg

DRUGS (4)
  1. COUMADIN [Suspect]
     Indication: FEMUR FRACTURE
     Dates: start: 20071201
  2. WARFARIN SODIUM [Suspect]
     Indication: FEMUR FRACTURE
  3. ANTIHYPERTENSIVE [Concomitant]
  4. CHOLESTEROL MEDICATION [Concomitant]

REACTIONS (8)
  - ATRIAL FIBRILLATION [None]
  - CEREBROVASCULAR ACCIDENT [None]
  - DIZZINESS [None]
  - DRUG HYPERSENSITIVITY [None]
  - HAEMORRHAGE [None]
  - RED BLOOD CELL COUNT DECREASED [None]
  - RENAL FAILURE [None]
  - VISION BLURRED [None]
